FAERS Safety Report 10395651 (Version 9)
Quarter: 2015Q4

REPORT INFORMATION
  Report Type: Report from Study
  Country: CA (occurrence: CA)
  Receive Date: 20140820
  Receipt Date: 20151007
  Transmission Date: 20160304
  Serious: Yes (Other)
  Sender: FDA-Public Use
  Company Number: CA-ROCHE-1191893

PATIENT
  Age: 51 Year
  Sex: Male
  Weight: 63.5 kg

DRUGS (11)
  1. TYLENOL [Concomitant]
     Active Substance: ACETAMINOPHEN
  2. METHYLPREDNISOLONE. [Concomitant]
     Active Substance: METHYLPREDNISOLONE
     Indication: PREMEDICATION
     Route: 042
     Dates: start: 20130205
  3. RITUXAN [Suspect]
     Active Substance: RITUXIMAB
     Dosage: ON 11/MAR/2015, PATIENT RECEIVED MOST RECENT DOSE OF RITUXIMAB.?DATE OF LAST RITUXIMAB INFUSION: 21/
     Route: 042
     Dates: start: 20130219
  4. DIPHENHYDRAMINE HCL [Concomitant]
     Active Substance: DIPHENHYDRAMINE HYDROCHLORIDE
     Indication: PREMEDICATION
     Route: 048
     Dates: start: 20130205
  5. PANTOPRAZOLE [Concomitant]
     Active Substance: PANTOPRAZOLE SODIUM
  6. RITUXAN [Suspect]
     Active Substance: RITUXIMAB
     Indication: RHEUMATOID ARTHRITIS
     Dosage: DATE OF THE LAST DOSE RECIEVED PRIOR TO THE ADVERSE EVENT: 19/FEB/2013
     Route: 042
     Dates: start: 20130205
  7. PLAQUENIL [Concomitant]
     Active Substance: HYDROXYCHLOROQUINE SULFATE
  8. VITAMIN A [Concomitant]
     Active Substance: VITAMIN A
  9. ARAVA [Concomitant]
     Active Substance: LEFLUNOMIDE
  10. ACETAMINOPHEN. [Concomitant]
     Active Substance: ACETAMINOPHEN
     Indication: PREMEDICATION
     Route: 048
     Dates: start: 20130205
  11. COUMADIN [Concomitant]
     Active Substance: WARFARIN SODIUM

REACTIONS (10)
  - Thrombosis [Unknown]
  - Osteopenia [Not Recovered/Not Resolved]
  - Fatigue [Recovered/Resolved]
  - Cough [Recovered/Resolved]
  - Skin abrasion [Recovered/Resolved]
  - Influenza [Recovered/Resolved]
  - Pyrexia [Unknown]
  - Arthralgia [Recovering/Resolving]
  - Rheumatoid arthritis [Not Recovered/Not Resolved]
  - Laceration [Recovered/Resolved]

NARRATIVE: CASE EVENT DATE: 20130809
